FAERS Safety Report 15974370 (Version 1)
Quarter: 2019Q1

REPORT INFORMATION
  Report Type: Spontaneous
  Country: BR (occurrence: BR)
  Receive Date: 20190218
  Receipt Date: 20190218
  Transmission Date: 20190418
  Serious: Yes (Other)
  Sender: FDA-Public Use
  Company Number: BR-SA-2019SA039953

PATIENT
  Sex: Male
  Weight: 103 kg

DRUGS (2)
  1. LANTUS [Suspect]
     Active Substance: INSULIN GLARGINE
     Dosage: UNK UNK, UNK
     Route: 065
     Dates: start: 2009
  2. APIDRA [Suspect]
     Active Substance: INSULIN GLULISINE
     Dosage: UNK UNK, UNK
     Route: 065
     Dates: start: 2011

REACTIONS (4)
  - Blood uric acid increased [Unknown]
  - Renal failure [Unknown]
  - Blood creatinine increased [Unknown]
  - Hypoglycaemia [Unknown]
